FAERS Safety Report 5399454-6 (Version None)
Quarter: 2007Q3

REPORT INFORMATION
  Report Type: 
  Country: None (occurrence: None)
  Receive Date: 20070727
  Receipt Date: 20070718
  Transmission Date: 20080115
  Serious: Yes (Other)
  Sender: FDA-Public Use
  Company Number: IN-PFIZER INC-2007060201

PATIENT
  Sex: Male
  Weight: 60 kg

DRUGS (1)
  1. DALACINE IV [Suspect]
     Indication: SOFT TISSUE INFECTION
     Route: 042
     Dates: start: 20070711, end: 20070714

REACTIONS (1)
  - DELIRIUM [None]
